FAERS Safety Report 19080594 (Version 2)
Quarter: 2021Q2

REPORT INFORMATION
  Report Type: Report from Study
  Country: US (occurrence: US)
  Receive Date: 20210331
  Receipt Date: 20210428
  Transmission Date: 20210717
  Serious: Yes (Other)
  Sender: FDA-Public Use
  Company Number: US-TAKEDA-2021TUS019622

PATIENT
  Sex: Male
  Weight: 145 kg

DRUGS (20)
  1. LMX4 [Concomitant]
     Active Substance: LIDOCAINE
  2. ATORVASTATIN [Concomitant]
     Active Substance: ATORVASTATIN
  3. IPRATROPIUM [Concomitant]
     Active Substance: IPRATROPIUM
  4. MONTELUKAST [Concomitant]
     Active Substance: MONTELUKAST SODIUM
  5. CLONIDINE. [Concomitant]
     Active Substance: CLONIDINE
  6. DIPHENHYDRAMINE. [Concomitant]
     Active Substance: DIPHENHYDRAMINE
  7. TOVIAZ [Concomitant]
     Active Substance: FESOTERODINE FUMARATE
  8. ASPIRIN (E.C.) [Concomitant]
     Active Substance: ASPIRIN
  9. CUVITRU [Suspect]
     Active Substance: HUMAN IMMUNOGLOBULIN G
     Indication: IMMUNODEFICIENCY COMMON VARIABLE
     Dosage: 32 GRAM, Q2WEEKS
     Route: 058
     Dates: start: 20210310
  10. EPINEPHRINE. [Concomitant]
     Active Substance: EPINEPHRINE
  11. ALBUTEROL [SALBUTAMOL] [Concomitant]
     Active Substance: ALBUTEROL
  12. CETRIZINE [Concomitant]
     Active Substance: CETIRIZINE HYDROCHLORIDE
  13. ACETAMINOPHEN;HYDROCODONE [Concomitant]
     Active Substance: ACETAMINOPHEN\HYDROCODONE
  14. ALLOPURINOL. [Concomitant]
     Active Substance: ALLOPURINOL
  15. METOPROLOL. [Concomitant]
     Active Substance: METOPROLOL
  16. LINZESS [Concomitant]
     Active Substance: LINACLOTIDE
  17. PROAIR [FLUTICASONE PROPIONATE] [Concomitant]
     Active Substance: FLUTICASONE PROPIONATE
  18. GABAPENTIN. [Concomitant]
     Active Substance: GABAPENTIN
  19. DEXILANT [Concomitant]
     Active Substance: DEXLANSOPRAZOLE
  20. ACETAMINOPHEN. [Concomitant]
     Active Substance: ACETAMINOPHEN

REACTIONS (3)
  - Sinusitis [Unknown]
  - Lower respiratory tract infection [Unknown]
  - Infusion site haemorrhage [Unknown]
